FAERS Safety Report 25832662 (Version 2)
Quarter: 2025Q4

REPORT INFORMATION
  Report Type: Report from Study
  Country: EU (occurrence: EU)
  Receive Date: 20250922
  Receipt Date: 20251002
  Transmission Date: 20260117
  Serious: Yes (Hospitalization)
  Sender: ABBVIE
  Company Number: EU-ABBVIE-6466209

PATIENT
  Age: 74 Year
  Sex: Female
  Weight: 61.2 kg

DRUGS (14)
  1. FOSCARBIDOPA\FOSLEVODOPA [Suspect]
     Active Substance: FOSCARBIDOPA\FOSLEVODOPA
     Indication: Parkinson^s disease
     Dosage: LOADING DOSE DRUG: 0.6 ML?CONTINUOUS RATE PUMP SETTING BASE 0.45 ML/H?CONTINUOUS RATE PUMP SETTIN...
     Route: 058
     Dates: start: 20240520, end: 20240521
  2. FOSCARBIDOPA\FOSLEVODOPA [Suspect]
     Active Substance: FOSCARBIDOPA\FOSLEVODOPA
     Dosage: LOADING DOSE DRUG: 0.6 ML?CONTINUOUS RATE PUMP SETTING BASE 0.47 ML/H?CONTINUOUS RATE PUMP SETTIN...
     Route: 058
     Dates: start: 20240521, end: 20240619
  3. FOSCARBIDOPA\FOSLEVODOPA [Suspect]
     Active Substance: FOSCARBIDOPA\FOSLEVODOPA
     Dosage: LOADING DOSE DRUG: 0.6 ML?CONTINUOUS RATE PUMP SETTING BASE 0.49 ML/H?CONTINUOUS RATE PUMP SETTIN...
     Route: 058
     Dates: start: 20240619, end: 20240830
  4. FOSCARBIDOPA\FOSLEVODOPA [Suspect]
     Active Substance: FOSCARBIDOPA\FOSLEVODOPA
     Dosage: LOADING DOSE DRUG: 0.6 ML?CONTINUOUS RATE PUMP SETTING BASE 0.49 ML/H?CONTINUOUS RATE PUMP SETTIN...
     Route: 058
     Dates: start: 20240830, end: 20241204
  5. FOSCARBIDOPA\FOSLEVODOPA [Suspect]
     Active Substance: FOSCARBIDOPA\FOSLEVODOPA
     Dosage: LOADING DOSE DRUG: 0.6 ML?CONTINUOUS RATE PUMP SETTING BASE 0.51 ML/H?CONTINUOUS RATE PUMP SETTIN...
     Route: 058
     Dates: start: 20241204, end: 20250512
  6. FOSCARBIDOPA\FOSLEVODOPA [Suspect]
     Active Substance: FOSCARBIDOPA\FOSLEVODOPA
     Dosage: LOADING DOSE DRUG: 0.6 ML?CONTINUOUS RATE PUMP SETTING BASE 0.53 ML/H?CONTINUOUS RATE PUMP SETTIN...
     Route: 058
     Dates: start: 20250513
  7. XARELTO [Concomitant]
     Active Substance: RIVAROXABAN
     Indication: Atrial fibrillation
     Route: 048
     Dates: start: 20220306
  8. LEVOTHYROXINE SODIUM [Concomitant]
     Active Substance: LEVOTHYROXINE SODIUM
     Indication: Hypothyroidism
     Dosage: ONCE
     Route: 048
     Dates: start: 2000
  9. OMEPRAZOLE [Concomitant]
     Active Substance: OMEPRAZOLE
     Indication: Antacid therapy
     Dosage: TIME INTERVAL: AS NECESSARY: AD LIBITUM
     Route: 048
     Dates: start: 20230524
  10. MOVICOL [Concomitant]
     Active Substance: POLYETHYLENE GLYCOL 3350\POTASSIUM CHLORIDE\SODIUM BICARBONATE\SODIUM CHLORIDE
     Indication: Constipation
     Dosage: TIME INTERVAL: AS NECESSARY: 25 BAG, AD LIBITUM
     Route: 048
     Dates: start: 20221024
  11. ACETAMINOPHEN [Concomitant]
     Active Substance: ACETAMINOPHEN
     Indication: Pain
     Dosage: TIME INTERVAL: AS NECESSARY: AD LIBITUM
     Route: 048
     Dates: start: 20230524
  12. METOPROLOL [Concomitant]
     Active Substance: METOPROLOL
     Indication: Atrial fibrillation
     Dosage: METOPROLOL 50 MG IN THE MORNING, 25 MG IN THE EVENING
     Route: 048
     Dates: start: 20250213
  13. METOPROLOL [Concomitant]
     Active Substance: METOPROLOL
     Indication: Atrial fibrillation
     Dosage: 50 MG, 1.5 IN THE MORNING AND 1 IN THE EVENING.(125 MG/DAY)
     Route: 048
     Dates: start: 20241107, end: 20250212
  14. ROTIGOTINE [Concomitant]
     Active Substance: ROTIGOTINE
     Indication: Parkinson^s disease
     Route: 062
     Dates: start: 20241017

REACTIONS (1)
  - Asthenia [Recovered/Resolved]

NARRATIVE: CASE EVENT DATE: 20250908
